FAERS Safety Report 5132308-9 (Version None)
Quarter: 2006Q4

REPORT INFORMATION
  Report Type: 
  Country: None (occurrence: None)
  Receive Date: 20061020
  Receipt Date: 20061020
  Transmission Date: 20070319
  Serious: Yes (Hospitalization)
  Sender: FDA-Public Use
  Company Number: None

PATIENT
  Sex: Male
  Weight: 78.7 kg

DRUGS (5)
  1. GLEEVEC [Suspect]
     Indication: ASTROCYTOMA
     Dosage: 500MG PO BID
     Route: 048
     Dates: start: 20060907, end: 20061004
  2. HYDROXYUREA [Suspect]
     Indication: ASTROCYTOMA
     Dosage: 500MG PO BID
     Route: 048
     Dates: start: 20060907, end: 20061004
  3. TRILEPTAL [Concomitant]
  4. KEPPRA [Concomitant]
  5. CLONAZEPAM [Concomitant]

REACTIONS (11)
  - CARTILAGE INJURY [None]
  - CONTUSION [None]
  - DYSPHAGIA [None]
  - EPISTAXIS [None]
  - FACIAL BONES FRACTURE [None]
  - FRACTURE [None]
  - LARYNGEAL DISORDER [None]
  - NASAL SEPTUM DEVIATION [None]
  - NECK INJURY [None]
  - THERAPY CESSATION [None]
  - THYROID DISORDER [None]
